FAERS Safety Report 6289372-3 (Version None)
Quarter: 2009Q3

REPORT INFORMATION
  Report Type: 
  Country: None (occurrence: None)
  Receive Date: 20090730
  Receipt Date: 20090717
  Transmission Date: 20100115
  Serious: Yes (Hospitalization, Disabling)
  Sender: FDA-Public Use
  Company Number: GB-RANBAXY-2009RR-25808

PATIENT
  Age: 20 Year
  Sex: Male

DRUGS (2)
  1. CODEINE SUL TAB [Suspect]
     Indication: PAIN
     Dosage: UNK
     Route: 048
     Dates: start: 20090624, end: 20090625
  2. DICLOFENAC [Concomitant]
     Indication: PAIN
     Dosage: 50 MG, UNK
     Route: 048
     Dates: start: 20090624, end: 20090625

REACTIONS (2)
  - MUSCLE RIGIDITY [None]
  - MUSCLE SPASMS [None]
